FAERS Safety Report 22193477 (Version 2)
Quarter: 2023Q2

REPORT INFORMATION
  Report Type: Spontaneous
  Country: CN (occurrence: CN)
  Receive Date: 20230410
  Receipt Date: 20230503
  Transmission Date: 20230721
  Serious: No
  Sender: FDA-Public Use
  Company Number: CN-BAYER-2023A042189

PATIENT
  Sex: Male

DRUGS (1)
  1. KERENDIA [Suspect]
     Active Substance: FINERENONE
     Dosage: UNK
     Route: 048
     Dates: start: 20230324, end: 202303

REACTIONS (2)
  - Blood creatinine increased [None]
  - Glomerular filtration rate decreased [None]

NARRATIVE: CASE EVENT DATE: 20230329
